FAERS Safety Report 8231752-0 (Version None)
Quarter: 2012Q1

REPORT INFORMATION
  Report Type: 
  Country: None (occurrence: None)
  Receive Date: 20120323
  Receipt Date: 20120314
  Transmission Date: 20120608
  Serious: Yes (Hospitalization)
  Sender: FDA-Public Use
  Company Number: IT-BRISTOL-MYERS SQUIBB COMPANY-16464935

PATIENT
  Age: 67 Year
  Sex: Female

DRUGS (4)
  1. GLUCOPHAGE [Suspect]
     Indication: DIABETES MELLITUS
     Route: 048
     Dates: start: 20110101, end: 20120311
  2. REPAGLINIDE [Concomitant]
     Route: 048
  3. ASPIRIN [Concomitant]
     Route: 048
  4. RAMIPRIL [Concomitant]
     Route: 048

REACTIONS (6)
  - LACTIC ACIDOSIS [None]
  - VOMITING [None]
  - RENAL FAILURE [None]
  - PANCREATITIS ACUTE [None]
  - ACUTE CORONARY SYNDROME [None]
  - ABDOMINAL PAIN UPPER [None]
